FAERS Safety Report 6752900-5 (Version None)
Quarter: 2010Q2

REPORT INFORMATION
  Report Type: 
  Country: None (occurrence: None)
  Receive Date: 20100603
  Receipt Date: 20100524
  Transmission Date: 20101027
  Serious: Yes (Death, Hospitalization)
  Sender: FDA-Public Use
  Company Number: US-CELGENEUS-163-20785-10022067

PATIENT
  Sex: Female

DRUGS (3)
  1. THALOMID [Suspect]
     Indication: MULTIPLE MYELOMA
     Route: 048
     Dates: start: 20080601, end: 20100201
  2. COUMADIN [Concomitant]
     Route: 048
  3. COUMADIN [Concomitant]

REACTIONS (2)
  - COAGULOPATHY [None]
  - NEUROLOGICAL DECOMPENSATION [None]
